FAERS Safety Report 5130256-1 (Version None)
Quarter: 2006Q4

REPORT INFORMATION
  Report Type: 
  Country: None (occurrence: None)
  Receive Date: 20061019
  Receipt Date: 20061016
  Transmission Date: 20070319
  Serious: Yes (Life-Threatening)
  Sender: FDA-Public Use
  Company Number: 2006UW19947

PATIENT
  Age: 67 Year
  Sex: Male

DRUGS (2)
  1. LIDOCAINE [Suspect]
     Dosage: BBRAUN OUTLOOK SMART PUMP
     Route: 042
     Dates: start: 20061012
  2. MEXILETINE HYDROCHLORIDE [Suspect]
     Dates: start: 20061012

REACTIONS (5)
  - CONVULSION [None]
  - DYSARTHRIA [None]
  - GLASGOW COMA SCALE ABNORMAL [None]
  - INCORRECT DOSE ADMINISTERED [None]
  - SOMNOLENCE [None]
